FAERS Safety Report 13438645 (Version 8)
Quarter: 2018Q4

REPORT INFORMATION
  Report Type: Report from Study
  Country: AU (occurrence: AU)
  Receive Date: 20170412
  Receipt Date: 20181227
  Transmission Date: 20190204
  Serious: Yes (Hospitalization, Other)
  Sender: FDA-Public Use
  Company Number: AU-BRISTOL-MYERS SQUIBB COMPANY-BMS-2017-028506

PATIENT
  Age: 70 Year
  Sex: Female

DRUGS (2)
  1. ABATACEPT [Suspect]
     Active Substance: ABATACEPT
     Indication: RHEUMATOID ARTHRITIS
     Dosage: 125 MG, QWK
     Route: 058
     Dates: start: 20151130, end: 20160716
  2. ABATACEPT [Suspect]
     Active Substance: ABATACEPT
     Indication: PRODUCT USED FOR UNKNOWN INDICATION
     Dosage: UNK
     Route: 065
     Dates: start: 20160910

REACTIONS (8)
  - Urinary tract infection [Recovered/Resolved]
  - Vaginal prolapse repair [Recovered/Resolved]
  - Hypertension [Recovered/Resolved]
  - Salmonellosis [Recovered/Resolved]
  - Vaginal prolapse [Unknown]
  - Breast conserving surgery [Unknown]
  - Benign breast neoplasm [Unknown]
  - Weight decreased [Recovered/Resolved]

NARRATIVE: CASE EVENT DATE: 20160714
